FAERS Safety Report 4348963-7 (Version None)
Quarter: 2004Q2

REPORT INFORMATION
  Report Type: 
  Country: None (occurrence: None)
  Receive Date: 20040427
  Receipt Date: 20040419
  Transmission Date: 20050107
  Serious: Yes (Life-Threatening)
  Sender: FDA-Public Use
  Company Number: 7867

PATIENT
  Age: 37 Year
  Sex: Male

DRUGS (2)
  1. ACYCLOVIR [Suspect]
     Indication: ENCEPHALITIS VIRAL
     Dosage: 1000 MG TID
     Route: 042
  2. VALPROATE [Concomitant]

REACTIONS (14)
  - APHASIA [None]
  - BLOOD CREATININE INCREASED [None]
  - BLOOD GLUCOSE INCREASED [None]
  - BLOOD POTASSIUM INCREASED [None]
  - BLOOD PRESSURE SYSTOLIC INCREASED [None]
  - BLOOD UREA INCREASED [None]
  - COMA [None]
  - DRUG TOXICITY [None]
  - ELECTROENCEPHALOGRAM ABNORMAL [None]
  - HAEMODIALYSIS [None]
  - HEART RATE INCREASED [None]
  - MEDICATION ERROR [None]
  - MYOCLONUS [None]
  - NEUROTOXICITY [None]
